FAERS Safety Report 19305402 (Version 3)
Quarter: 2021Q2

REPORT INFORMATION
  Report Type: Spontaneous
  Country: DE (occurrence: DE)
  Receive Date: 20210525
  Receipt Date: 20210616
  Transmission Date: 20210717
  Serious: Yes (Hospitalization, Other)
  Sender: FDA-Public Use
  Company Number: DE-PFIZER INC-2021520799

PATIENT
  Age: 72 Year
  Sex: Female
  Weight: 75 kg

DRUGS (16)
  1. NORSPAN [NORFLOXACIN] [Suspect]
     Active Substance: NORFLOXACIN
     Indication: RHEUMATIC DISORDER
     Dosage: UNK
     Route: 062
     Dates: start: 2019
  2. OPIUM [PAPAVER SOMNIFERUM] [Suspect]
     Active Substance: OPIUM
     Indication: DIARRHOEA
     Dosage: UNK
     Route: 048
     Dates: start: 2019
  3. PREDNISOLONE. [Suspect]
     Active Substance: PREDNISOLONE
     Indication: RHEUMATIC DISORDER
     Dosage: UNK
     Route: 048
     Dates: start: 2006
  4. VIT D [Suspect]
     Active Substance: VITAMIN D NOS
     Indication: OSTEOPOROSIS
     Dosage: UNK
     Route: 048
     Dates: start: 2012
  5. SYMBICORT [Suspect]
     Active Substance: BUDESONIDE\FORMOTEROL FUMARATE DIHYDRATE
     Indication: ASTHMA
  6. OPIUM [PAPAVER SOMNIFERUM] [Suspect]
     Active Substance: OPIUM
     Dosage: UNK
     Route: 048
     Dates: start: 2020
  7. CICLOSPORIN [Suspect]
     Active Substance: CYCLOSPORINE
     Indication: HEART TRANSPLANT
     Dosage: UNK
     Route: 048
     Dates: start: 2006
  8. TAFAMIDIS [Concomitant]
     Active Substance: TAFAMIDIS MEGLUMINE
     Indication: AMYLOIDOSIS
     Dosage: 20 MG, QD
     Route: 065
     Dates: start: 201708
  9. PRAVASTATIN SODIUM. [Suspect]
     Active Substance: PRAVASTATIN SODIUM
     Indication: HYPERCHOLESTEROLAEMIA
     Dosage: UNK
     Route: 048
     Dates: start: 2012
  10. EVEROLIMUS. [Suspect]
     Active Substance: EVEROLIMUS
     Indication: HEART TRANSPLANT
     Dosage: UNK
     Route: 048
     Dates: start: 2006
  11. IBANDRONIC ACID. [Suspect]
     Active Substance: IBANDRONIC ACID
     Indication: OSTEOPOROSIS
     Dosage: UNK
     Route: 048
     Dates: start: 2012
  12. PANTOPRAZOLE [Suspect]
     Active Substance: PANTOPRAZOLE
     Indication: GASTRITIS PROPHYLAXIS
     Dosage: UNK
     Route: 048
     Dates: start: 2012
  13. CALCIUM [Suspect]
     Active Substance: CALCIUM
     Indication: OSTEOPOROSIS
     Dosage: UNK
     Route: 048
     Dates: start: 2012
  14. BEROTEC [Suspect]
     Active Substance: FENOTEROL HYDROBROMIDE
     Dosage: UNK
     Route: 055
     Dates: start: 2000
  15. SYMBICORT [Suspect]
     Active Substance: BUDESONIDE\FORMOTEROL FUMARATE DIHYDRATE
     Indication: ASTHMA
     Dosage: UNK
     Route: 055
     Dates: start: 2000
  16. TORASEMIDE [Suspect]
     Active Substance: TORSEMIDE
     Indication: CARDIAC FAILURE
     Dosage: UNK
     Route: 048
     Dates: start: 2012

REACTIONS (16)
  - Sinus arrhythmia [Unknown]
  - Dizziness [Unknown]
  - Pleural effusion [Unknown]
  - Congenital coronary artery malformation [Unknown]
  - Arteriosclerosis [Unknown]
  - Pyrexia [Recovered/Resolved]
  - Asthma [Unknown]
  - Polyneuropathy [Unknown]
  - Hepatic cirrhosis [Unknown]
  - Renal cyst [Unknown]
  - Pancreatic steatosis [Unknown]
  - Dyspnoea [Unknown]
  - Arterial thrombosis [Unknown]
  - Cardiac failure [Recovered/Resolved]
  - Chronic kidney disease [Unknown]
  - Urinary tract infection [Recovered/Resolved]

NARRATIVE: CASE EVENT DATE: 2010
